FAERS Safety Report 17384830 (Version 1)
Quarter: 2020Q1

REPORT INFORMATION
  Report Type: Spontaneous
  Country: BR (occurrence: BR)
  Receive Date: 20200206
  Receipt Date: 20200206
  Transmission Date: 20200409
  Serious: Yes (Other)
  Sender: FDA-Public Use
  Company Number: NVSC2020BR029007

PATIENT
  Sex: Female

DRUGS (2)
  1. SOTALOL HYDROCHLORIDE. [Suspect]
     Active Substance: SOTALOL HYDROCHLORIDE
     Indication: ARRHYTHMIA
     Dosage: 0.5 DF (80 MG) (STARTED BEFORE ALMOST 1 AND HALF YEAR)
     Route: 065
  2. DIOVAN [Suspect]
     Active Substance: VALSARTAN
     Indication: HYPERTENSION
     Dosage: STARTED BEFORE ALMOST 1 AND HALF YEAR)
     Route: 065

REACTIONS (1)
  - Arrhythmia [Unknown]
